FAERS Safety Report 5106778-6 (Version None)
Quarter: 2006Q3

REPORT INFORMATION
  Report Type: 
  Country: None (occurrence: None)
  Receive Date: 20060731
  Receipt Date: 20050831
  Transmission Date: 20061208
  Serious: Yes (Other)
  Sender: FDA-Public Use
  Company Number: US-JNJFOC-20050900818

PATIENT
  Age: 18 Year
  Sex: Male

DRUGS (3)
  1. RISPERDAL [Suspect]
     Indication: SCHIZOPHRENIA
     Dosage: 1 MG, 2 IN 1 DAY, ORAL
     Route: 048
     Dates: start: 19961001, end: 19961001
  2. WELLBUTRIN [Concomitant]
  3. ZOLOFT [Concomitant]

REACTIONS (1)
  - SUICIDAL IDEATION [None]
